FAERS Safety Report 10254127 (Version 1)
Quarter: 2014Q2

REPORT INFORMATION
  Report Type: Report from Study
  Country: MX (occurrence: MX)
  Receive Date: 20140623
  Receipt Date: 20140623
  Transmission Date: 20141212
  Serious: Yes (Other)
  Sender: FDA-Public Use
  Company Number: PHHY2014MX077347

PATIENT
  Age: 57 Year
  Sex: Female

DRUGS (4)
  1. TRILEPTAL FMI [Suspect]
     Indication: HYPOAESTHESIA
     Dosage: 0.5 DF, BID
     Route: 048
     Dates: start: 20140519, end: 20140602
  2. TRILEPTAL FMI [Suspect]
     Indication: OFF LABEL USE
     Dosage: 1.5 DF, DAILY (HALF IN THE MORNING AND 1 AT NIGHT)
     Route: 048
     Dates: start: 20140602
  3. NUCLEO CMP FORTE [Concomitant]
     Dosage: 2 UKN, DAILY
     Dates: start: 20140519
  4. NOOTROPIL [Concomitant]
     Dosage: 2 DF, DAILY
     Dates: start: 20140519

REACTIONS (2)
  - Hand fracture [Not Recovered/Not Resolved]
  - Fall [Recovered/Resolved]
